FAERS Safety Report 18166632 (Version 1)
Quarter: 2020Q3

REPORT INFORMATION
  Report Type: Spontaneous
  Country: TR (occurrence: TR)
  Receive Date: 20200819
  Receipt Date: 20200819
  Transmission Date: 20201103
  Serious: Yes (Hospitalization, Other)
  Sender: FDA-Public Use
  Company Number: TR-LUPIN PHARMACEUTICALS INC.-2020-04816

PATIENT
  Age: 9 Month
  Sex: Female

DRUGS (1)
  1. METOCLOPRAMIDE. [Suspect]
     Active Substance: METOCLOPRAMIDE
     Indication: PRODUCT USED FOR UNKNOWN INDICATION
     Dosage: 10 DOSAGE FORM?10 TABLETS OF METOCLOPRAMIDE 10MG
     Route: 065

REACTIONS (6)
  - Accidental overdose [Unknown]
  - Somnolence [Recovered/Resolved]
  - Dystonia [Recovered/Resolved]
  - Myoclonus [Recovered/Resolved]
  - Accidental exposure to product by child [Unknown]
  - Asthenia [Recovered/Resolved]
